FAERS Safety Report 19886001 (Version 1)
Quarter: 2021Q3

REPORT INFORMATION
  Report Type: Spontaneous
  Country: ES (occurrence: ES)
  Receive Date: 20210927
  Receipt Date: 20210927
  Transmission Date: 20211014
  Serious: Yes (Other)
  Sender: FDA-Public Use
  Company Number: ES-PFIZER INC-202101193033

PATIENT
  Age: 52 Year
  Sex: Male

DRUGS (8)
  1. AZITHROMYCIN ANHYDROUS. [Suspect]
     Active Substance: AZITHROMYCIN ANHYDROUS
     Dosage: 500 MG
     Route: 042
     Dates: start: 20210809, end: 20210822
  2. CLEXANE [Suspect]
     Active Substance: ENOXAPARIN SODIUM
     Indication: PULMONARY EMBOLISM
     Dosage: 100 MG, ALTERNATE DAY
     Route: 058
     Dates: start: 20210822, end: 20210825
  3. OMEPRAZOLE. [Suspect]
     Active Substance: OMEPRAZOLE
     Dosage: 40 MG, 1X/DAY
     Route: 040
     Dates: start: 20210808, end: 20210822
  4. CEFTRIAXON [Suspect]
     Active Substance: CEFTRIAXONE
     Dosage: 1 G
     Route: 042
     Dates: start: 20210809, end: 20210822
  5. MORFIN [MORPHINE] [Concomitant]
     Active Substance: MORPHINE
     Dosage: 10 MG
     Route: 042
     Dates: start: 20210809, end: 20210822
  6. DEXAMETASONA KERN PHARMA [Suspect]
     Active Substance: DEXAMETHASONE
     Dosage: 7.2 MG
     Route: 042
     Dates: start: 20210808, end: 20210822
  7. CLEXANE [Concomitant]
     Active Substance: ENOXAPARIN SODIUM
     Indication: COVID-19 TREATMENT
     Dosage: 60 MG, 1X/DAY
     Route: 058
     Dates: start: 20210808, end: 20210822
  8. MIDAZOLAM. [Concomitant]
     Active Substance: MIDAZOLAM
     Dosage: 50 MG
     Route: 042
     Dates: start: 20210809, end: 20210822

REACTIONS (1)
  - Autoimmune heparin-induced thrombocytopenia [Recovering/Resolving]

NARRATIVE: CASE EVENT DATE: 20210825
